FAERS Safety Report 8307992-9 (Version None)
Quarter: 2012Q2

REPORT INFORMATION
  Report Type: 
  Country: None (occurrence: None)
  Receive Date: 20120424
  Receipt Date: 20120412
  Transmission Date: 20120825
  Serious: Yes (Hospitalization)
  Sender: FDA-Public Use
  Company Number: FR-VIIV HEALTHCARE LIMITED-B0794974A

PATIENT
  Sex: Male

DRUGS (4)
  1. EPIVIR [Suspect]
     Indication: HIV INFECTION
     Dosage: 150MG PER DAY
     Route: 048
     Dates: start: 20120303
  2. VIREAD [Suspect]
     Indication: HIV INFECTION
     Dosage: 245MG EVERY 3 DAYS
     Route: 048
     Dates: start: 20120303
  3. ISENTRESS [Suspect]
     Indication: HIV INFECTION
     Dosage: 400MG TWICE PER DAY
     Route: 048
     Dates: start: 20120303
  4. ADCIRCA [Suspect]
     Indication: PULMONARY ARTERIAL HYPERTENSION
     Route: 048
     Dates: start: 20120303

REACTIONS (8)
  - RASH [None]
  - DYSPNOEA [None]
  - TACHYCARDIA [None]
  - SKIN EXFOLIATION [None]
  - PRURITUS [None]
  - ANAEMIA [None]
  - NEUTROPENIA [None]
  - GENERAL PHYSICAL HEALTH DETERIORATION [None]
